FAERS Safety Report 9296739 (Version 6)
Quarter: 2015Q2

REPORT INFORMATION
  Report Type: Spontaneous
  Country: US (occurrence: US)
  Receive Date: 20130517
  Receipt Date: 20150514
  Transmission Date: 20150821
  Serious: Yes (Hospitalization, Other)
  Sender: FDA-Public Use
  Company Number: US-009507513-1305USA010616

PATIENT
  Sex: Male
  Weight: 86.71 kg

DRUGS (4)
  1. ORACEA [Concomitant]
     Active Substance: DOXYCYCLINE
     Indication: ROSACEA
     Dosage: 40 MG, QD
     Dates: start: 2008, end: 201207
  2. PROPECIA [Suspect]
     Active Substance: FINASTERIDE
     Indication: ANDROGENETIC ALOPECIA
     Dosage: 1 MG, QD
     Route: 048
     Dates: start: 20100504, end: 201207
  3. SERTRALINE HYDROCHLORIDE. [Concomitant]
     Active Substance: SERTRALINE HYDROCHLORIDE
     Indication: PANIC ATTACK
  4. SERTRALINE HYDROCHLORIDE. [Concomitant]
     Active Substance: SERTRALINE HYDROCHLORIDE
     Indication: ANXIETY
     Dosage: 25 MG, 0.5-1 TAB QD
     Dates: start: 200812

REACTIONS (58)
  - Pyrexia [Unknown]
  - Muscular weakness [Unknown]
  - Bruxism [Unknown]
  - Semen volume decreased [Unknown]
  - Adverse event [Unknown]
  - Hypothyroidism [Unknown]
  - Dyspnoea [Unknown]
  - Cough [Unknown]
  - Arthralgia [Unknown]
  - Myalgia [Unknown]
  - Hypoxia [Unknown]
  - Neck pain [Not Recovered/Not Resolved]
  - Anxiety [Unknown]
  - Nasal operation [Unknown]
  - Dysphonia [Unknown]
  - Sleep disorder [Unknown]
  - Hypersensitivity [Unknown]
  - Hand fracture [Recovered/Resolved]
  - Dyspnoea exertional [Unknown]
  - Dyspnoea [Unknown]
  - Chest pain [Unknown]
  - Joint swelling [Unknown]
  - Dizziness [Unknown]
  - Tremor [Unknown]
  - Exposure to toxic agent [Unknown]
  - Hypoaesthesia [Unknown]
  - Anticoagulant therapy [Unknown]
  - Sexual dysfunction [Not Recovered/Not Resolved]
  - Drug hypersensitivity [Unknown]
  - Deep vein thrombosis [Unknown]
  - Sleep apnoea syndrome [Unknown]
  - Nasal polypectomy [Unknown]
  - Loss of consciousness [Unknown]
  - Eye pain [Unknown]
  - Rhinorrhoea [Unknown]
  - Blood cholesterol increased [Unknown]
  - Paraesthesia [Unknown]
  - Facial bones fracture [Unknown]
  - Depression [Not Recovered/Not Resolved]
  - Fatigue [Unknown]
  - Pain in extremity [Unknown]
  - Headache [Unknown]
  - Back pain [Unknown]
  - Rhinoplasty [Unknown]
  - Libido decreased [Unknown]
  - Orchidectomy [Unknown]
  - Weight increased [Unknown]
  - Acne [Unknown]
  - Peripheral swelling [Unknown]
  - Gynaecomastia [Not Recovered/Not Resolved]
  - Pulmonary embolism [Unknown]
  - Muscle spasms [Unknown]
  - Blood testosterone decreased [Unknown]
  - Herpes simplex [Unknown]
  - Confusional state [Unknown]
  - Snoring [Unknown]
  - Erectile dysfunction [Not Recovered/Not Resolved]
  - Testicular pain [Unknown]

NARRATIVE: CASE EVENT DATE: 2010
